FAERS Safety Report 12468963 (Version 5)
Quarter: 2016Q3

REPORT INFORMATION
  Report Type: Spontaneous
  Country: CA (occurrence: CA)
  Receive Date: 20160615
  Receipt Date: 20160708
  Transmission Date: 20161109
  Serious: Yes (Other)
  Sender: FDA-Public Use
  Company Number: CA-BIOMARINAP-CA-2016-110139

PATIENT
  Age: 11 Year
  Sex: Female
  Weight: 25 kg

DRUGS (4)
  1. BENADRYL [Concomitant]
     Active Substance: DIPHENHYDRAMINE HYDROCHLORIDE
     Indication: PREMEDICATION
  2. EMLA [Concomitant]
     Active Substance: LIDOCAINE\PRILOCAINE
     Indication: PREMEDICATION
  3. ALDURAZYME [Suspect]
     Active Substance: LARONIDASE
     Indication: MUCOPOLYSACCHARIDOSIS I
     Dosage: 14.5 MG, QW
     Route: 041
     Dates: start: 20130510
  4. IBUPROFEN. [Concomitant]
     Active Substance: IBUPROFEN
     Indication: PREMEDICATION

REACTIONS (2)
  - Humerus fracture [Recovering/Resolving]
  - Fall [Unknown]

NARRATIVE: CASE EVENT DATE: 20160602
